FAERS Safety Report 9698723 (Version 1)
Quarter: 2013Q4

REPORT INFORMATION
  Report Type: Spontaneous
  Country: GB (occurrence: GB)
  Receive Date: 20131120
  Receipt Date: 20131120
  Transmission Date: 20140711
  Serious: Yes (Death, Other)
  Sender: FDA-Public Use
  Company Number: GB-SPECTRUM PHARMACEUTICALS, INC.-13-F-GB-00293

PATIENT
  Sex: 0

DRUGS (5)
  1. FLUOROURACIL [Suspect]
     Indication: COLORECTAL CANCER
     Dosage: UNK, UNK, UNK
     Route: 042
  2. LEUCOVORIN /00566701/ [Suspect]
     Indication: COLORECTAL CANCER
     Dosage: UNK UNK, UNK
     Route: 042
  3. OXALIPLATIN [Suspect]
     Indication: COLORECTAL CANCER
     Dosage: UNK UNK, UNK
     Route: 042
  4. CAPECITABINE [Suspect]
     Indication: COLORECTAL CANCER
     Dosage: UNK UNK, UNK
     Route: 048
  5. IRINOTECAN [Suspect]
     Indication: COLORECTAL CANCER
     Dosage: UNK UNK, UNK
     Route: 042

REACTIONS (14)
  - Hepatic failure [Fatal]
  - Cardiotoxicity [Fatal]
  - Embolism [Fatal]
  - Gastrointestinal toxicity [Fatal]
  - Cardiotoxicity [Unknown]
  - Neutropenia [Unknown]
  - Diarrhoea [Unknown]
  - Mucosal inflammation [Unknown]
  - Stomatitis [Unknown]
  - Palmar-plantar erythrodysaesthesia syndrome [Unknown]
  - Paraesthesia [Unknown]
  - Anaemia [Unknown]
  - Thrombocytopenia [Unknown]
  - Liver function test abnormal [Unknown]
